FAERS Safety Report 24379139 (Version 1)
Quarter: 2024Q3

REPORT INFORMATION
  Report Type: Spontaneous
  Country: US (occurrence: None)
  Receive Date: 20240929
  Receipt Date: 20240929
  Transmission Date: 20241017
  Serious: Yes (Hospitalization)
  Sender: Public
  Company Number: None

PATIENT
  Age: 58 Year
  Sex: Female

DRUGS (1)
  1. PAZOPANIB [Suspect]
     Active Substance: PAZOPANIB
     Indication: Uterine cancer
     Dosage: FREQUENCY : DAILY;?

REACTIONS (3)
  - Heart rate irregular [None]
  - Heart rate decreased [None]
  - Cardiac pacemaker insertion [None]
